FAERS Safety Report 8776469 (Version 2)
Quarter: 2012Q4

REPORT INFORMATION
  Report Type: 
  Country: JP (occurrence: JP)
  Receive Date: 20120910
  Receipt Date: 20121029
  Transmission Date: 20130627
  Serious: Yes (Death, Hospitalization)
  Sender: FDA-Public Use
  Company Number: PHHY2012JP077746

PATIENT
  Age: 68 Year
  Sex: Female
  Weight: 54.9 kg

DRUGS (6)
  1. HEPARIN [Suspect]
     Dosage: 0.01 IU/cm/min
  2. HEPARIN [Suspect]
     Dosage: 5000 DF, UNK
  3. HEPARIN [Suspect]
     Dosage: 5000 DF, UNK
  4. HEPARIN [Suspect]
     Dosage: 20000 IU/ml, UNK
  5. CISPLATIN [Concomitant]
     Indication: CHEMOTHERAPY
  6. FLUOROURACIL [Concomitant]
     Indication: CHEMOTHERAPY

REACTIONS (7)
  - Hepatic cancer [Fatal]
  - Heparin-induced thrombocytopenia [Recovering/Resolving]
  - Pulmonary embolism [Recovering/Resolving]
  - Chest pain [Unknown]
  - Dyspnoea [Unknown]
  - Hypoxia [Recovering/Resolving]
  - Thrombosis in device [Unknown]
